FAERS Safety Report 13489311 (Version 1)
Quarter: 2017Q2

REPORT INFORMATION
  Report Type: Spontaneous
  Country: US (occurrence: US)
  Receive Date: 20170426
  Receipt Date: 20170426
  Transmission Date: 20170830
  Serious: No
  Sender: FDA-Public Use
  Company Number: US-ALKERMES INC.-ALK-2017-000893

PATIENT
  Sex: Male

DRUGS (1)
  1. VIVITROL [Suspect]
     Active Substance: NALTREXONE
     Indication: DRUG USE DISORDER
     Dosage: 380 MG, QMO
     Route: 030
     Dates: start: 201612

REACTIONS (10)
  - Drug withdrawal syndrome [Unknown]
  - White blood cell count increased [Unknown]
  - Drug use disorder [Unknown]
  - Weight decreased [Unknown]
  - Injection site reaction [Unknown]
  - Skin discolouration [Unknown]
  - Cold sweat [Unknown]
  - Substance use disorder [Unknown]
  - Haematemesis [Unknown]
  - Injection site mass [Unknown]

NARRATIVE: CASE EVENT DATE: 201612
